FAERS Safety Report 24140349 (Version 1)
Quarter: 2024Q3

REPORT INFORMATION
  Report Type: Spontaneous
  Country: FR (occurrence: FR)
  Receive Date: 20240726
  Receipt Date: 20240726
  Transmission Date: 20241017
  Serious: Yes (Hospitalization)
  Sender: TEVA
  Company Number: None

PATIENT
  Age: 67 Year
  Sex: Male
  Weight: 86 kg

DRUGS (2)
  1. AMOXICILLIN [Suspect]
     Active Substance: AMOXICILLIN
     Indication: Endocarditis
     Route: 048
     Dates: start: 20240429, end: 20240507
  2. AMOXICILLIN [Suspect]
     Active Substance: AMOXICILLIN
     Indication: Endocarditis
     Route: 042
     Dates: start: 20240411, end: 20240429

REACTIONS (2)
  - Acute kidney injury [Recovered/Resolved]
  - Haematuria [Recovered/Resolved]

NARRATIVE: CASE EVENT DATE: 20240507
